FAERS Safety Report 6437556-3 (Version None)
Quarter: 2009Q4

REPORT INFORMATION
  Report Type: 
  Country: None (occurrence: None)
  Receive Date: 20091109
  Receipt Date: 20091026
  Transmission Date: 20100525
  Serious: Yes (Hospitalization)
  Sender: FDA-Public Use
  Company Number: DSM-2009-01488

PATIENT
  Age: 66 Year
  Sex: Male

DRUGS (3)
  1. VOCADO (OLMESARTAN MEDOXOMIL/ AMLODIPINE BESILATE) (TABLET) [Suspect]
     Indication: HYPERTENSION
     Dosage: 40/5 MG (1 IN 1 D), ORAL
     Route: 048
     Dates: start: 20090907, end: 20090909
  2. VOTUM PLUS (OLMESARTAN MEDOXOMIL/HYDROCHLOROTHIAZIDE) (HYDROCHLOROTHIA [Suspect]
     Indication: HYPERTENSION
     Dosage: ORAL
     Route: 048
     Dates: start: 20090909, end: 20090910
  3. VELMETIA (SITAGLIPTIN/METFORMIN) (ORAL ANTIDIABETICS) [Suspect]
     Indication: DIABETES MELLITUS
     Dosage: 100/1700 MG (2 IN 1 D)
     Dates: start: 20090907, end: 20090910

REACTIONS (3)
  - MYOCLONUS [None]
  - NERVE STIMULATION TEST ABNORMAL [None]
  - PRODUCT SUBSTITUTION ISSUE [None]
